FAERS Safety Report 7627131 (Version 2)
Quarter: 2012Q4

REPORT INFORMATION
  Report Type: 
  Country: US (occurrence: US)
  Receive Date: 20101013
  Receipt Date: 20121005
  Transmission Date: 20130627
  Serious: Yes (Death)
  Sender: FDA-Public Use
  Company Number: US-ASTRAZENECA-2010SE02418

PATIENT
  Age: 64 Year
  Sex: Female

DRUGS (3)
  1. SYMBICORT [Suspect]
     Indication: ASTHMA
     Dosage: 160/4.5 UG, 2 PUFFS
     Route: 055
     Dates: start: 20091220
  2. NEXIUM [Suspect]
     Indication: GASTROOESOPHAGEAL REFLUX DISEASE
     Route: 048
     Dates: start: 2007
  3. PROAIR INHALER [Concomitant]
     Indication: ASTHMA

REACTIONS (3)
  - Death [Fatal]
  - Cough [Unknown]
  - Retching [Unknown]
